FAERS Safety Report 17986286 (Version 2)
Quarter: 2020Q3

REPORT INFORMATION
  Report Type: Spontaneous
  Country: US (occurrence: US)
  Receive Date: 20200706
  Receipt Date: 20200713
  Transmission Date: 20201103
  Serious: Yes (Other)
  Sender: FDA-Public Use
  Company Number: NVSC2020US190720

PATIENT

DRUGS (1)
  1. MYCOPHENOLATE MOFETIL. [Suspect]
     Active Substance: MYCOPHENOLATE MOFETIL
     Indication: MORPHOEA
     Dosage: UNK
     Route: 065

REACTIONS (4)
  - Anaemia [Unknown]
  - Product use in unapproved indication [Unknown]
  - Cytopenia [Unknown]
  - Leukopenia [Unknown]
